FAERS Safety Report 8393459 (Version 7)
Quarter: 2013Q1

REPORT INFORMATION
  Report Type: Spontaneous
  Country: US (occurrence: US)
  Receive Date: 20120207
  Receipt Date: 20130308
  Transmission Date: 20140127
  Serious: Yes (Other)
  Sender: FDA-Public Use
  Company Number: US-PFIZER INC-2012032287

PATIENT
  Age: 76 Year
  Sex: Male
  Weight: 74.38 kg

DRUGS (6)
  1. LIPITOR [Suspect]
     Indication: BLOOD CHOLESTEROL INCREASED
     Dosage: 20 MG, 1X/DAY
     Route: 048
     Dates: start: 2010
  2. LIPITOR [Suspect]
     Indication: PROPHYLAXIS
  3. ATENOLOL [Concomitant]
     Indication: HYPERTENSION
     Dosage: 50 MG, DAILY
  4. ATENOLOL [Concomitant]
     Indication: CARDIAC DISORDER
  5. LISINOPRIL [Concomitant]
     Indication: CARDIAC DISORDER
     Dosage: 20 MG, DAILY
  6. LISINOPRIL [Concomitant]
     Dosage: 40 MG, DAILY
     Dates: start: 20130305

REACTIONS (7)
  - Mitral valve incompetence [Not Recovered/Not Resolved]
  - Aortic calcification [Not Recovered/Not Resolved]
  - Chest pain [Unknown]
  - Hypoacusis [Unknown]
  - Echocardiogram abnormal [Unknown]
  - Blood triglycerides increased [Unknown]
  - Drug ineffective [Recovered/Resolved]
